FAERS Safety Report 5110687-6 (Version None)
Quarter: 2006Q3

REPORT INFORMATION
  Report Type: 
  Country: None (occurrence: None)
  Receive Date: 20060921
  Receipt Date: 20060913
  Transmission Date: 20061208
  Serious: Yes (Hospitalization)
  Sender: FDA-Public Use
  Company Number: ES-MERCK-0609ESP00028

PATIENT
  Age: 33 Year
  Sex: Female

DRUGS (2)
  1. ALDOMET [Suspect]
     Indication: ESSENTIAL HYPERTENSION
     Route: 048
     Dates: start: 20060620, end: 20060625
  2. ALDOMET [Suspect]
     Route: 048
     Dates: start: 20060620, end: 20060625

REACTIONS (4)
  - CHOLELITHIASIS [None]
  - HEPATIC STEATOSIS [None]
  - HEPATITIS CHOLESTATIC [None]
  - HYPERBILIRUBINAEMIA [None]
